FAERS Safety Report 8651490 (Version 3)
Quarter: 2013Q4

REPORT INFORMATION
  Report Type: Spontaneous
  Country: AT (occurrence: AT)
  Receive Date: 20120619
  Receipt Date: 20131031
  Transmission Date: 20140711
  Serious: Yes (Life-Threatening, Hospitalization)
  Sender: FDA-Public Use
  Company Number: AT-009507513-2012SP032620

PATIENT
  Age: 44 Year
  Sex: Female

DRUGS (3)
  1. VICTRELIS [Suspect]
     Indication: HEPATITIS C
     Dosage: 800 MG, TID
     Route: 048
     Dates: start: 20120321, end: 20120610
  2. PEGINTRON [Suspect]
     Indication: HEPATITIS C
     Dosage: 100 MICROGRAM, UNK
     Route: 058
     Dates: start: 20120321, end: 20120610
  3. REBETOL [Suspect]
     Indication: HEPATITIS C
     Dosage: UNK

REACTIONS (4)
  - Leukopenia [Recovered/Resolved]
  - Agranulocytosis [Recovered/Resolved]
  - Platelet count decreased [Unknown]
  - Anaemia [Unknown]
